FAERS Safety Report 6937733-9 (Version None)
Quarter: 2010Q3

REPORT INFORMATION
  Report Type: 
  Country: None (occurrence: None)
  Receive Date: 20100820
  Receipt Date: 20100820
  Transmission Date: 20110219
  Serious: No
  Sender: FDA-Public Use
  Company Number: None

PATIENT
  Sex: Female
  Weight: 108.8633 kg

DRUGS (2)
  1. EFFEXOR XR [Suspect]
     Indication: ANXIETY
     Dosage: 150MG DAILY
     Dates: start: 20080401
  2. EFFEXOR XR [Suspect]
     Indication: DEPRESSION
     Dosage: 150MG DAILY
     Dates: start: 20080401

REACTIONS (9)
  - AMNESIA [None]
  - CONSTIPATION [None]
  - DIZZINESS [None]
  - HEADACHE [None]
  - MUSCLE RIGIDITY [None]
  - NAUSEA [None]
  - TREMOR [None]
  - VISION BLURRED [None]
  - WITHDRAWAL SYNDROME [None]
